FAERS Safety Report 6750898-7 (Version None)
Quarter: 2010Q2

REPORT INFORMATION
  Report Type: 
  Country: None (occurrence: None)
  Receive Date: 20100602
  Receipt Date: 20060811
  Transmission Date: 20101027
  Serious: Yes (Other)
  Sender: FDA-Public Use
  Company Number: HR-BAYER-201025710GPV

PATIENT
  Sex: Male

DRUGS (1)
  1. BETAFERON [Suspect]
     Indication: MULTIPLE SCLEROSIS
     Route: 058

REACTIONS (6)
  - CHILLS [None]
  - ERYTHEMA [None]
  - FALL [None]
  - HEADACHE [None]
  - PARALYSIS [None]
  - PYREXIA [None]
